FAERS Safety Report 22129675 (Version 1)
Quarter: 2023Q1

REPORT INFORMATION
  Report Type: Spontaneous
  Country: US (occurrence: None)
  Receive Date: 20230322
  Receipt Date: 20230322
  Transmission Date: 20230418
  Serious: Yes (Disabling)
  Sender: FDA-Public Use
  Company Number: None

PATIENT
  Age: 55 Year
  Sex: Female
  Weight: 63.9 kg

DRUGS (8)
  1. KEYTRUDA [Suspect]
     Active Substance: PEMBROLIZUMAB
     Indication: Triple negative breast cancer
     Route: 042
     Dates: start: 20220211, end: 20230129
  2. ZOLOFT [Concomitant]
  3. BUSPAR [Concomitant]
  4. XANAX [Concomitant]
  5. SYNTHROID [Concomitant]
  6. CYTOMEL [Concomitant]
  7. PROPRANOLOL [Concomitant]
  8. PREDNISONE [Concomitant]
     Active Substance: PREDNISONE

REACTIONS (8)
  - Hypothyroidism [None]
  - Blood thyroid stimulating hormone increased [None]
  - Muscular weakness [None]
  - Muscle spasms [None]
  - Muscle spasms [None]
  - Gait inability [None]
  - Loss of personal independence in daily activities [None]
  - Muscular weakness [None]

NARRATIVE: CASE EVENT DATE: 20230129
